FAERS Safety Report 25140847 (Version 4)
Quarter: 2025Q2

REPORT INFORMATION
  Report Type: Spontaneous
  Country: US (occurrence: US)
  Receive Date: 20250331
  Receipt Date: 20250522
  Transmission Date: 20250716
  Serious: Yes (Hospitalization)
  Sender: PFIZER
  Company Number: US-PFIZER INC-202500066243

PATIENT
  Age: 13 Year
  Sex: Male

DRUGS (6)
  1. GENOTROPIN [Suspect]
     Active Substance: SOMATROPIN
     Indication: Growth hormone deficiency
     Dosage: 0.8MG EVERY NIGHT
     Dates: start: 2023
  2. GENOTROPIN [Suspect]
     Active Substance: SOMATROPIN
     Dosage: 0.5 MG, DAILY
  3. ARIPIPRAZOLE [Concomitant]
     Active Substance: ARIPIPRAZOLE
     Indication: Behavioural therapy
     Dosage: 5 MG, 2X/DAY, TWICE DAILY; 5MG TABLET, 1 BY MOUTH IN MORNING, 1 AT DINNER TIME
     Route: 048
  4. GUANFACINE [Concomitant]
     Active Substance: GUANFACINE
     Indication: Behavioural therapy
     Dosage: 1 MG, 2X/DAY, 1MG TABLET BY MOUTH TWICE DAY
     Route: 048
  5. SERTRALINE [Concomitant]
     Active Substance: SERTRALINE HYDROCHLORIDE
     Indication: Behavioural therapy
  6. MELATONIN [Concomitant]
     Active Substance: MELATONIN
     Indication: Sleep disorder
     Dosage: 10 MG, 1X/DAY, 5MG TECHNICALLY, 10MG, TAKES 2 TABLETS BY MOUTH AT BEDTIME
     Route: 048

REACTIONS (3)
  - Emotional disorder [Unknown]
  - Device breakage [Unknown]
  - Drug dose omission by device [Unknown]

NARRATIVE: CASE EVENT DATE: 20250301
